FAERS Safety Report 24232066 (Version 1)
Quarter: 2024Q3

REPORT INFORMATION
  Report Type: Other
  Country: PR (occurrence: PR)
  Receive Date: 20240821
  Receipt Date: 20240821
  Transmission Date: 20241017
  Serious: Yes (Life-Threatening, Hospitalization, Other)
  Sender: Omnivium Pharmaceuticals
  Company Number: PR-Omnivium Pharmaceuticals LLC-2160639

PATIENT
  Age: 66 Year
  Sex: Male

DRUGS (5)
  1. NUMBRINO [Suspect]
     Active Substance: COCAINE HYDROCHLORIDE
     Indication: Product used for unknown indication
     Route: 065
  2. EMPAGLIFLOZIN [Interacting]
     Active Substance: EMPAGLIFLOZIN
     Route: 065
  3. EXENATIDE [Concomitant]
     Active Substance: EXENATIDE
     Route: 065
  4. INSULIN GLARGINE [Concomitant]
     Active Substance: INSULIN GLARGINE
     Route: 065
  5. METFORMIN [Concomitant]
     Active Substance: METFORMIN HYDROCHLORIDE
     Route: 065

REACTIONS (4)
  - Euglycaemic diabetic ketoacidosis [Recovered/Resolved]
  - Drug interaction [Unknown]
  - Toxicity to various agents [Recovered/Resolved]
  - Metabolic acidosis [Recovered/Resolved]
